FAERS Safety Report 7126483-4 (Version None)
Quarter: 2010Q4

REPORT INFORMATION
  Report Type: 
  Country: None (occurrence: None)
  Receive Date: 20101129
  Receipt Date: 20101123
  Transmission Date: 20110411
  Serious: Yes (Other)
  Sender: FDA-Public Use
  Company Number: FR-ROCHE-743721

PATIENT
  Age: 65 Year
  Sex: Female

DRUGS (1)
  1. ROCEPHIN [Suspect]
     Indication: PNEUMONIA
     Route: 065
     Dates: start: 20101116, end: 20101121

REACTIONS (5)
  - DERMATITIS BULLOUS [None]
  - DRUG HYPERSENSITIVITY [None]
  - EYELID PAIN [None]
  - PRURITUS [None]
  - PYREXIA [None]
